FAERS Safety Report 7332786-0 (Version None)
Quarter: 2011Q1

REPORT INFORMATION
  Report Type: 
  Country: None (occurrence: None)
  Receive Date: 20110304
  Receipt Date: 20101116
  Transmission Date: 20110831
  Serious: Yes (Hospitalization, Other)
  Sender: FDA-Public Use
  Company Number: US-BAYER-201038339NA

PATIENT
  Sex: Female
  Weight: 63.039 kg

DRUGS (6)
  1. YAZ [Suspect]
     Indication: ACNE
  2. YASMIN [Suspect]
     Indication: ACNE
     Dosage: UNK
     Dates: start: 20050111, end: 20050101
  3. DIGOXIN [Concomitant]
  4. UNCODEABLE ^UNCLASSIFIABLE^ [Concomitant]
  5. OCELLA [Suspect]
     Indication: ACNE
  6. COREG [Concomitant]

REACTIONS (6)
  - DYSPNOEA [None]
  - HEART RATE IRREGULAR [None]
  - CARDIOMYOPATHY [None]
  - VENTRICULAR EXTRASYSTOLES [None]
  - CHEST PAIN [None]
  - EJECTION FRACTION DECREASED [None]
